FAERS Safety Report 11521151 (Version 2)
Quarter: 2015Q4

REPORT INFORMATION
  Report Type: Spontaneous
  Country: CH (occurrence: CH)
  Receive Date: 20150918
  Receipt Date: 20151016
  Transmission Date: 20160304
  Serious: Yes (Hospitalization, Other)
  Sender: FDA-Public Use
  Company Number: CH-PFIZER INC-2015299654

PATIENT
  Age: 78 Year
  Sex: Female

DRUGS (43)
  1. BLEOMYCIN [Suspect]
     Active Substance: BLEOMYCIN SULFATE
     Indication: HODGKIN^S DISEASE STAGE IV
     Dosage: 1 DF, FIRST CYCLE (D8)
     Route: 041
     Dates: start: 20150122, end: 20150129
  2. BLEOMYCIN [Suspect]
     Active Substance: BLEOMYCIN SULFATE
     Dosage: UNK, 3RD CYCLE
     Dates: start: 20150304, end: 20150317
  3. ENDOXAN /00021101/ [Suspect]
     Active Substance: CYCLOPHOSPHAMIDE
     Dosage: UNK, 4TH CYCLE
     Dates: start: 20150325, end: 20150407
  4. ONCOVIN [Suspect]
     Active Substance: VINCRISTINE SULFATE
     Dosage: UNK, 3RD CYCLE
     Dates: start: 20150304, end: 20150317
  5. VALCYTE [Suspect]
     Active Substance: VALGANCICLOVIR HYDROCHLORIDE
     Indication: CYTOMEGALOVIRUS CHORIORETINITIS
     Dosage: 2X300 MG, 1X/DAY
     Route: 048
     Dates: start: 20150521
  6. NOPIL [Concomitant]
     Active Substance: SULFAMETHOXAZOLE\TRIMETHOPRIM
     Indication: ANTIBIOTIC PROPHYLAXIS
     Dosage: UNK, THREE TIMES PER WEEK
     Dates: start: 20150123
  7. ENDOXAN /00021101/ [Suspect]
     Active Substance: CYCLOPHOSPHAMIDE
     Dosage: UNK, 5TH CYCLE
     Dates: start: 20150415, end: 20150422
  8. NATULAN [Suspect]
     Active Substance: PROCARBAZINE HYDROCHLORIDE
     Dosage: UNK, 2ND CYCLE
     Dates: start: 20150212, end: 20150225
  9. ONCOVIN [Suspect]
     Active Substance: VINCRISTINE SULFATE
     Dosage: UNK, 4TH CYCLE
     Dates: start: 20150325, end: 20150407
  10. NEULASTA [Suspect]
     Active Substance: PEGFILGRASTIM
     Dosage: 1 DF, FIRST CYCLE (D4)
     Route: 041
     Dates: start: 20150122
  11. ADRIBLASTIN [Suspect]
     Active Substance: DOXORUBICIN HYDROCHLORIDE
     Indication: HODGKIN^S DISEASE STAGE IV
     Dosage: 1 DF, FIRST CYCLE (D1)
     Route: 041
     Dates: start: 20150122, end: 20150129
  12. ADRIBLASTIN [Suspect]
     Active Substance: DOXORUBICIN HYDROCHLORIDE
     Dosage: UNK, 4TH CYCLE
     Dates: start: 20150325, end: 20150407
  13. ETOPOPHOS [Suspect]
     Active Substance: ETOPOSIDE PHOSPHATE
     Dosage: UNK, 3RD CYCLE
     Dates: start: 20150304, end: 20150317
  14. ETOPOPHOS [Suspect]
     Active Substance: ETOPOSIDE PHOSPHATE
     Dosage: UNK, 4TH CYCLE
     Dates: start: 20150325, end: 20150407
  15. ETOPOPHOS [Suspect]
     Active Substance: ETOPOSIDE PHOSPHATE
     Dosage: UNK, 5TH CYCLE
     Dates: start: 201504
  16. PREDNISONE. [Suspect]
     Active Substance: PREDNISONE
     Dosage: UNK, 5TH CYCLE
     Dates: start: 20150415, end: 20150422
  17. VALCYTE [Suspect]
     Active Substance: VALGANCICLOVIR HYDROCHLORIDE
     Dosage: 900 MG, 1X/DAY
     Dates: start: 20150715
  18. ADRIBLASTIN [Suspect]
     Active Substance: DOXORUBICIN HYDROCHLORIDE
     Dosage: UNK, 3RD CYCLE
     Dates: start: 20150304, end: 20150317
  19. ETOPOPHOS [Suspect]
     Active Substance: ETOPOSIDE PHOSPHATE
     Indication: HODGKIN^S DISEASE STAGE IV
     Dosage: 1 DF, FIRST CYCLE (D1-3)
     Route: 041
     Dates: start: 20150122, end: 20150129
  20. ETOPOPHOS [Suspect]
     Active Substance: ETOPOSIDE PHOSPHATE
     Dosage: UNK, 2ND CYCLE
     Dates: start: 20150212, end: 20150225
  21. NATULAN [Suspect]
     Active Substance: PROCARBAZINE HYDROCHLORIDE
     Dosage: UNK, 4TH CYCLE
     Dates: start: 20150325, end: 20150407
  22. PREDNISONE. [Suspect]
     Active Substance: PREDNISONE
     Dosage: UNK, 2ND CYCLE
     Dates: start: 20150212, end: 20150225
  23. ADRIBLASTIN [Suspect]
     Active Substance: DOXORUBICIN HYDROCHLORIDE
     Dosage: UNK, 5TH CYCLE
     Dates: start: 20150415, end: 20150422
  24. BLEOMYCIN [Suspect]
     Active Substance: BLEOMYCIN SULFATE
     Dosage: UNK, 2ND CYCLE
     Dates: start: 20150212, end: 20150225
  25. BLEOMYCIN [Suspect]
     Active Substance: BLEOMYCIN SULFATE
     Dosage: UNK, 4TH CYCLE
     Dates: start: 20150325, end: 20150407
  26. NATULAN [Suspect]
     Active Substance: PROCARBAZINE HYDROCHLORIDE
     Indication: HODGKIN^S DISEASE STAGE IV
     Dosage: 1 DF, FIRST CYCLE (D1-5+7)
     Route: 041
     Dates: start: 20150122, end: 20150129
  27. ONCOVIN [Suspect]
     Active Substance: VINCRISTINE SULFATE
     Indication: HODGKIN^S DISEASE STAGE IV
     Dosage: 1 DF, FIRST CYCLE (D8)
     Route: 041
     Dates: start: 20150122, end: 20150129
  28. ONCOVIN [Suspect]
     Active Substance: VINCRISTINE SULFATE
     Dosage: UNK, 5TH CYCLE
     Dates: start: 20150415, end: 20150422
  29. ENDOXAN /00021101/ [Suspect]
     Active Substance: CYCLOPHOSPHAMIDE
     Dosage: UNK, 3RD CYCLE
     Dates: start: 20150304, end: 20150317
  30. PREDNISONE. [Suspect]
     Active Substance: PREDNISONE
     Dosage: UNK, 3RD CYCLE
     Dates: start: 20150304, end: 20150317
  31. CYMEVENE /00784202/ [Suspect]
     Active Substance: GANCICLOVIR SODIUM
     Indication: CYTOMEGALOVIRUS CHORIORETINITIS
     Dosage: 1 DF, 1X/DAY
     Route: 041
     Dates: start: 20150507, end: 20150521
  32. FOSCAVIR [Suspect]
     Active Substance: FOSCARNET SODIUM
     Indication: CYTOMEGALOVIRUS CHORIORETINITIS
     Dosage: 4500 MG, ALTERNATE DAY
     Route: 042
     Dates: start: 20150525, end: 20150530
  33. ADRIBLASTIN [Suspect]
     Active Substance: DOXORUBICIN HYDROCHLORIDE
     Dosage: UNK, 2ND CYCLE
     Dates: start: 20150212, end: 20150225
  34. ENDOXAN /00021101/ [Suspect]
     Active Substance: CYCLOPHOSPHAMIDE
     Dosage: UNK, 2ND CYCLE
     Dates: start: 20150212, end: 20150225
  35. NATULAN [Suspect]
     Active Substance: PROCARBAZINE HYDROCHLORIDE
     Dosage: UNK, 3RD CYCLE
     Dates: start: 20150304, end: 20150317
  36. NATULAN [Suspect]
     Active Substance: PROCARBAZINE HYDROCHLORIDE
     Dosage: UNK, 5TH CYCLE
     Dates: start: 20150415, end: 20150422
  37. PREDNISONE. [Suspect]
     Active Substance: PREDNISONE
     Dosage: UNK, 4TH CYCLE
     Dates: start: 20150325, end: 20150407
  38. VALCYTE [Suspect]
     Active Substance: VALGANCICLOVIR HYDROCHLORIDE
     Dosage: 900 MG, 1X/DAY
     Route: 048
     Dates: start: 20150530, end: 20150629
  39. FOSCAVIR [Suspect]
     Active Substance: FOSCARNET SODIUM
     Dosage: 4500 MG, ALTERNATE DAY
     Route: 042
     Dates: start: 20150630, end: 20150715
  40. BLEOMYCIN [Suspect]
     Active Substance: BLEOMYCIN SULFATE
     Dosage: UNK, 5TH CYCLE
     Dates: start: 20150415, end: 20150422
  41. ENDOXAN /00021101/ [Suspect]
     Active Substance: CYCLOPHOSPHAMIDE
     Indication: HODGKIN^S DISEASE STAGE IV
     Dosage: 1 DF, FIRST CYCLE (D1)
     Route: 041
     Dates: start: 20150122, end: 20150129
  42. PREDNISONE. [Suspect]
     Active Substance: PREDNISONE
     Indication: HODGKIN^S DISEASE STAGE IV
     Dosage: 1 DF, FIRST CYCLE (D1-14)
     Route: 041
     Dates: start: 20150122, end: 20150129
  43. ONCOVIN [Suspect]
     Active Substance: VINCRISTINE SULFATE
     Dosage: UNK, 2ND CYCLE
     Dates: start: 20150212, end: 20150225

REACTIONS (5)
  - Sepsis [Recovered/Resolved]
  - Neutropenia [Recovered/Resolved]
  - Febrile neutropenia [Recovered/Resolved]
  - Cytomegalovirus chorioretinitis [Recovered/Resolved]
  - Neutropenia [Recovered/Resolved]

NARRATIVE: CASE EVENT DATE: 2015
